FAERS Safety Report 8495667-5 (Version None)
Quarter: 2012Q3

REPORT INFORMATION
  Report Type: 
  Country: None (occurrence: None)
  Receive Date: 20120709
  Receipt Date: 20120614
  Transmission Date: 20120928
  Serious: Yes (Other)
  Sender: FDA-Public Use
  Company Number: US-ROCHE-1082673

PATIENT
  Sex: Female

DRUGS (2)
  1. PEGASYS [Suspect]
     Indication: HEPATITIS C
     Dates: start: 20090101
  2. COPEGUS [Suspect]
     Indication: HEPATITIS C
     Dates: start: 20090101

REACTIONS (2)
  - NASOPHARYNGITIS [None]
  - EAR CONGESTION [None]
